FAERS Safety Report 11729379 (Version 1)
Quarter: 2015Q4

REPORT INFORMATION
  Report Type: Spontaneous
  Country: US (occurrence: US)
  Receive Date: 20151110
  Receipt Date: 20151110
  Transmission Date: 20160304
  Serious: No
  Sender: FDA-Public Use
  Company Number: US-ELI_LILLY_AND_COMPANY-US201111002819

PATIENT
  Sex: Female
  Weight: 49 kg

DRUGS (2)
  1. FORTEO [Suspect]
     Active Substance: TERIPARATIDE
     Indication: OSTEOPOROSIS
     Dosage: 20 UG, QD
     Dates: start: 20111031
  2. VITAMIN B12 [Concomitant]
     Active Substance: CYANOCOBALAMIN
     Dosage: UNK, OTHER

REACTIONS (12)
  - Pain [Unknown]
  - Malaise [Unknown]
  - Anxiety [Unknown]
  - Bone pain [Not Recovered/Not Resolved]
  - Abdominal pain upper [Recovering/Resolving]
  - Dizziness [Unknown]
  - Gastric disorder [Recovering/Resolving]
  - Gait disturbance [Unknown]
  - Dehydration [Unknown]
  - Nausea [Recovering/Resolving]
  - Decreased appetite [Unknown]
  - Weight decreased [Unknown]
